FAERS Safety Report 6191065-8 (Version None)
Quarter: 2009Q2

REPORT INFORMATION
  Report Type: 
  Country: None (occurrence: None)
  Receive Date: 20090515
  Receipt Date: 20090504
  Transmission Date: 20091009
  Serious: Yes (Hospitalization, Other)
  Sender: FDA-Public Use
  Company Number: FR-BAXTER-2009BH008122

PATIENT
  Age: 27 Year
  Sex: Male

DRUGS (5)
  1. ENDOXAN BAXTER [Suspect]
     Indication: B-CELL LYMPHOMA
     Route: 042
     Dates: start: 20090206
  2. MABTHERA [Suspect]
     Indication: B-CELL LYMPHOMA
     Route: 042
     Dates: start: 20090213
  3. METHOTREXATE [Suspect]
     Indication: B-CELL LYMPHOMA
     Route: 042
     Dates: start: 20090206
  4. VINCRISTINE SULFATE [Suspect]
     Indication: B-CELL LYMPHOMA
     Route: 042
     Dates: start: 20090206
  5. DOXORUBICINE CHLORHYDRATE [Suspect]
     Indication: B-CELL LYMPHOMA
     Route: 042
     Dates: start: 20090215

REACTIONS (2)
  - HYPERSENSITIVITY [None]
  - SEGMENTED HYALINISING VASCULITIS [None]
